FAERS Safety Report 17385126 (Version 1)
Quarter: 2020Q1

REPORT INFORMATION
  Report Type: Spontaneous
  Country: US (occurrence: US)
  Receive Date: 20200206
  Receipt Date: 20200206
  Transmission Date: 20200409
  Serious: No
  Sender: FDA-Public Use
  Company Number: US-ABBVIE-19K-163-3206185-00

PATIENT
  Age: 73 Year
  Sex: Female
  Weight: 59.93 kg

DRUGS (7)
  1. CELECOXIB. [Concomitant]
     Active Substance: CELECOXIB
     Indication: PAIN
  2. DULOXETINE. [Concomitant]
     Active Substance: DULOXETINE
     Indication: ANXIETY
  3. LEVOTHYROXINE. [Concomitant]
     Active Substance: LEVOTHYROXINE
     Indication: HEART RATE IRREGULAR
  4. HUMIRA [Suspect]
     Active Substance: ADALIMUMAB
     Indication: INFLAMMATION
  5. HUMIRA [Suspect]
     Active Substance: ADALIMUMAB
     Indication: COLITIS
     Route: 058
     Dates: start: 20191207
  6. BUDESONIDE. [Concomitant]
     Active Substance: BUDESONIDE
     Indication: COLITIS
  7. ATENOLOL. [Concomitant]
     Active Substance: ATENOLOL
     Indication: HEART RATE IRREGULAR

REACTIONS (3)
  - Device issue [Recovered/Resolved]
  - Off label use [Not Recovered/Not Resolved]
  - Incorrect dose administered [Recovered/Resolved]

NARRATIVE: CASE EVENT DATE: 20191207
